FAERS Safety Report 17269555 (Version 2)
Quarter: 2020Q2

REPORT INFORMATION
  Report Type: Spontaneous
  Country: DE (occurrence: DE)
  Receive Date: 20200114
  Receipt Date: 20200401
  Transmission Date: 20200713
  Serious: No
  Sender: FDA-Public Use
  Company Number: DE-ASTRAZENECA-2020SE04296

PATIENT
  Sex: Female
  Weight: 85 kg

DRUGS (5)
  1. FENOTEROL [Concomitant]
     Active Substance: FENOTEROL
  2. ROFLUMILAST. [Concomitant]
     Active Substance: ROFLUMILAST
  3. PREDNISOLONE. [Concomitant]
     Active Substance: PREDNISOLONE
  4. TIOTROPIUM [Concomitant]
     Active Substance: TIOTROPIUM
  5. FORMOTEROL/BUDESONID [Suspect]
     Active Substance: BUDESONIDE\FORMOTEROL FUMARATE DIHYDRATE
     Indication: ASTHMA
     Dosage: 320 / 9 UG UNKNOWN UNKNOWN
     Route: 055

REACTIONS (1)
  - Drug ineffective [Unknown]
